FAERS Safety Report 9280534 (Version 1)
Quarter: 2013Q2

REPORT INFORMATION
  Report Type: Spontaneous
  Country: IT (occurrence: IT)
  Receive Date: 20130509
  Receipt Date: 20130509
  Transmission Date: 20140414
  Serious: Yes (Life-Threatening)
  Sender: FDA-Public Use
  Company Number: IT-BAYER-2013-055134

PATIENT
  Age: 78 Year
  Sex: Male

DRUGS (2)
  1. CARDIOASPIRIN [Suspect]
     Indication: ANGINA PECTORIS
     Dosage: 100 MG, QD
     Route: 048
     Dates: start: 20110101, end: 20130103
  2. LAEVOLAC [Concomitant]

REACTIONS (4)
  - Hyperhidrosis [Unknown]
  - Presyncope [Unknown]
  - Melaena [Unknown]
  - Rectal haemorrhage [Unknown]
